FAERS Safety Report 15862168 (Version 2)
Quarter: 2019Q1

REPORT INFORMATION
  Report Type: Spontaneous
  Country: US (occurrence: US)
  Receive Date: 20190124
  Receipt Date: 20190205
  Transmission Date: 20190417
  Serious: No
  Sender: FDA-Public Use
  Company Number: US-BRISTOL-MYERS SQUIBB COMPANY-BMS-2019-004914

PATIENT
  Sex: Female
  Weight: 77.9 kg

DRUGS (2)
  1. YERVOY [Suspect]
     Active Substance: IPILIMUMAB
     Indication: RENAL CELL CARCINOMA STAGE IV
     Dosage: UNK, Q3WK
     Route: 042
  2. OPDIVO [Suspect]
     Active Substance: NIVOLUMAB
     Indication: RENAL CELL CARCINOMA STAGE IV
     Dosage: UNK, Q3WK
     Route: 042

REACTIONS (7)
  - Vitreous floaters [Unknown]
  - Pituitary enlargement [Unknown]
  - Fatigue [Unknown]
  - Asthenia [Unknown]
  - Amnesia [Unknown]
  - Feeling abnormal [Unknown]
  - Blood corticotrophin decreased [Unknown]
